FAERS Safety Report 6228672-X (Version None)
Quarter: 2009Q2

REPORT INFORMATION
  Report Type: 
  Country: None (occurrence: None)
  Receive Date: 20090614
  Receipt Date: 20090602
  Transmission Date: 20091009
  Serious: Yes (Hospitalization)
  Sender: FDA-Public Use
  Company Number: US-B.I. PHARMACEUTICALS,INC./RIDGEFIELD-2009-BP-03965BP

PATIENT
  Sex: Male
  Weight: 89 kg

DRUGS (1)
  1. MIRAPEX [Suspect]
     Indication: PARKINSON'S DISEASE
     Dates: start: 20010101, end: 20070129

REACTIONS (5)
  - ACUTE PSYCHOSIS [None]
  - DELUSION [None]
  - HYPERSEXUALITY [None]
  - IMPULSE-CONTROL DISORDER [None]
  - OBSESSIVE-COMPULSIVE DISORDER [None]
